FAERS Safety Report 22101031 (Version 1)
Quarter: 2023Q1

REPORT INFORMATION
  Report Type: Spontaneous
  Country: CN (occurrence: CN)
  Receive Date: 20230316
  Receipt Date: 20230316
  Transmission Date: 20230418
  Serious: Yes (Hospitalization)
  Sender: FDA-Public Use
  Company Number: CN-ORGANON-O2303CHN000491

PATIENT
  Age: 36 Year
  Sex: Female
  Weight: 60 kg

DRUGS (1)
  1. FOLLITROPIN BETA [Suspect]
     Active Substance: FOLLITROPIN BETA
     Dosage: 200 INTERNATIONAL UNIT (CONCENTRATION: 600IU/0.72ML)
     Dates: start: 20230301

REACTIONS (3)
  - Vertigo [Unknown]
  - Vomiting [Unknown]
  - Nausea [Unknown]

NARRATIVE: CASE EVENT DATE: 20230301
